FAERS Safety Report 9877853 (Version 3)
Quarter: 2014Q3

REPORT INFORMATION
  Report Type: Spontaneous
  Country: US (occurrence: US)
  Receive Date: 20140206
  Receipt Date: 20140825
  Transmission Date: 20150326
  Serious: Yes (Other)
  Sender: FDA-Public Use
  Company Number: US-BAYER-2014-016363

PATIENT
  Age: 42 Year
  Sex: Female

DRUGS (5)
  1. DIFLUCAN [Concomitant]
     Active Substance: FLUCONAZOLE
     Dosage: 1 DF, ONCE
     Route: 048
     Dates: start: 20110216
  2. DOXYCYCLINE HYCLATE. [Concomitant]
     Active Substance: DOXYCYCLINE HYCLATE
     Dosage: 1 DF, BID
     Route: 048
  3. MIRENA [Suspect]
     Active Substance: LEVONORGESTREL
     Indication: CONTRACEPTION
     Dosage: 20 MCG/24HR, CONT
     Route: 015
     Dates: start: 201306
  4. TINDAMAX [Concomitant]
     Active Substance: TINIDAZOLE
     Dosage: 4 DF, QD
     Route: 048
     Dates: start: 20130725
  5. SPRINTEC [Concomitant]
     Active Substance: ETHINYL ESTRADIOL\NORGESTIMATE
     Dosage: 1 DF, QD
     Route: 048
     Dates: start: 20131210

REACTIONS (9)
  - Genital haemorrhage [Recovered/Resolved]
  - Uterine leiomyoma [None]
  - Menorrhagia [Recovered/Resolved]
  - Device expulsion [Recovered/Resolved]
  - Ovarian cyst [None]
  - Abdominal pain lower [Recovered/Resolved]
  - Uterine enlargement [None]
  - Off label use [None]
  - Menstruation delayed [Recovered/Resolved]

NARRATIVE: CASE EVENT DATE: 201311
